FAERS Safety Report 5091725-6 (Version None)
Quarter: 2006Q3

REPORT INFORMATION
  Report Type: 
  Country: None (occurrence: None)
  Receive Date: 20060824
  Receipt Date: 20060810
  Transmission Date: 20061208
  Serious: Yes (Hospitalization)
  Sender: FDA-Public Use
  Company Number: 2006EU002336

PATIENT
  Age: 16 Year
  Sex: Female

DRUGS (2)
  1. PROGRAF [Suspect]
     Indication: RENAL TRANSPLANT
     Dosage: 2 MG, BID
     Dates: start: 20060401
  2. AZATHIOPRINE [Concomitant]

REACTIONS (2)
  - GALLBLADDER ENLARGEMENT [None]
  - PYREXIA [None]
